FAERS Safety Report 5533949-7 (Version None)
Quarter: 2007Q4

REPORT INFORMATION
  Report Type: 
  Country: None (occurrence: None)
  Receive Date: 20071129
  Receipt Date: 20071117
  Transmission Date: 20080405
  Serious: Yes (Hospitalization)
  Sender: FDA-Public Use
  Company Number: 20063170

PATIENT
  Age: 61 Year
  Sex: Male

DRUGS (2)
  1. LIORESAL [Suspect]
     Indication: MUSCLE SPASTICITY
     Dosage: DAILY; INTRATHECAL
  2. ANTI-INFLAMMATORIES AND MUSCLE RELAXANTS [Concomitant]

REACTIONS (7)
  - ABNORMAL BEHAVIOUR [None]
  - CSF CULTURE POSITIVE [None]
  - DISORIENTATION [None]
  - DYSARTHRIA [None]
  - ESCHERICHIA INFECTION [None]
  - MENINGITIS BACTERIAL [None]
  - PAIN [None]
